FAERS Safety Report 8654715 (Version 2)
Quarter: 2013Q3

REPORT INFORMATION
  Report Type: Spontaneous
  Country: US (occurrence: US)
  Receive Date: 20120709
  Receipt Date: 20130716
  Transmission Date: 20140515
  Serious: Yes (Hospitalization, Other)
  Sender: FDA-Public Use
  Company Number: US-PFIZER INC-2012161107

PATIENT
  Age: 31 Year
  Sex: Female

DRUGS (10)
  1. CHANTIX [Suspect]
     Dosage: STARTING PACK AND 1MG CONTINUING MONTH PACK
     Dates: start: 20071023
  2. RISPERDAL [Concomitant]
     Dosage: 0.25 MG AT BEDTIME, 1X/DAY
  3. TEMAZEPAM [Concomitant]
     Dosage: 30 MG AS NEEDED
  4. LAMICTAL [Concomitant]
     Dosage: 150 MG, 2X/DAY
     Route: 048
  5. SEROQUEL [Concomitant]
     Dosage: 200 MG AT BEDTIME, 1X/DAY
  6. LORAZEPAM [Concomitant]
     Dosage: 1 MG AS NEEDED
  7. FOCALIN [Concomitant]
     Dosage: EVERY DAY BEFORE NOON
  8. LEVAQUIN [Concomitant]
     Dosage: 250 MG, 1X/DAY
     Route: 048
  9. LEXAPRO [Concomitant]
     Dosage: 10 MG, 1X/DAY
  10. MOTRIN [Concomitant]
     Dosage: UNK

REACTIONS (2)
  - Intentional overdose [Unknown]
  - Suicide attempt [Unknown]
